FAERS Safety Report 8190210-2 (Version None)
Quarter: 2012Q1

REPORT INFORMATION
  Report Type: 
  Country: None (occurrence: None)
  Receive Date: 20120307
  Receipt Date: 20120305
  Transmission Date: 20120608
  Serious: Yes (Other)
  Sender: FDA-Public Use
  Company Number: US-PFIZER INC-2012032392

PATIENT
  Sex: Male
  Weight: 68.027 kg

DRUGS (4)
  1. PHENOBARBITAL [Concomitant]
     Dosage: UNK
  2. DILANTIN [Suspect]
     Dosage: UNK
     Route: 048
  3. PHENYTOIN SODIUM [Suspect]
     Indication: CONVULSION
     Dosage: 100 MG, UNK
     Route: 048
  4. DILANTIN [Suspect]
     Indication: CONVULSION
     Dosage: 100 MG, 3X/DAY
     Route: 048
     Dates: start: 19560101

REACTIONS (3)
  - DRUG INEFFECTIVE [None]
  - SMOKE SENSITIVITY [None]
  - CONVULSION [None]
